FAERS Safety Report 9362986 (Version 1)
Quarter: 2013Q2

REPORT INFORMATION
  Report Type: Spontaneous
  Country: US (occurrence: None)
  Receive Date: 20130619
  Receipt Date: 20130619
  Transmission Date: 20140414
  Serious: Yes (Death)
  Sender: FDA-Public Use
  Company Number: 2013PL000092

PATIENT
  Age: 72 Year
  Sex: Female

DRUGS (1)
  1. IMURAN (AZATHIOPRINE) [Suspect]
     Indication: DERMATOMYOSITIS

REACTIONS (2)
  - JC virus infection [None]
  - Progressive multifocal leukoencephalopathy [None]
